FAERS Safety Report 7812618-4 (Version None)
Quarter: 2011Q4

REPORT INFORMATION
  Report Type: 
  Country: None (occurrence: None)
  Receive Date: 20111013
  Receipt Date: 20110628
  Transmission Date: 20120403
  Serious: No
  Sender: FDA-Public Use
  Company Number: US-NOVEN-11US002707

PATIENT
  Sex: Female

DRUGS (1)
  1. FENTANYL [Suspect]
     Indication: PRODUCT USED FOR UNKNOWN INDICATION
     Dosage: 100 UG, UNKNOWN
     Route: 062
     Dates: start: 20060101

REACTIONS (3)
  - DRUG ADMINISTRATION ERROR [None]
  - APPLICATION SITE EROSION [None]
  - PRODUCT QUALITY ISSUE [None]
